FAERS Safety Report 5307171-3 (Version None)
Quarter: 2007Q2

REPORT INFORMATION
  Report Type: 
  Country: None (occurrence: None)
  Receive Date: 20070425
  Receipt Date: 20070222
  Transmission Date: 20071010
  Serious: No
  Sender: FDA-Public Use
  Company Number: US-AMGEN-US212216

PATIENT
  Sex: Female
  Weight: 86.3 kg

DRUGS (7)
  1. VECTIBIX [Suspect]
     Indication: COLORECTAL CANCER
     Route: 042
     Dates: start: 20070108
  2. ATIVAN [Concomitant]
     Route: 065
  3. BENADRYL [Concomitant]
     Route: 065
  4. ZOLOFT [Concomitant]
     Route: 065
  5. ALLEGRA [Concomitant]
     Route: 065
  6. ADVAIR DISKUS 100/50 [Concomitant]
     Route: 065
  7. NASACORT [Concomitant]
     Route: 065

REACTIONS (3)
  - CARCINOEMBRYONIC ANTIGEN INCREASED [None]
  - DERMATITIS ACNEIFORM [None]
  - DRY SKIN [None]
